FAERS Safety Report 25982959 (Version 1)
Quarter: 2025Q4

REPORT INFORMATION
  Report Type: Spontaneous
  Country: US (occurrence: US)
  Receive Date: 20251031
  Receipt Date: 20251031
  Transmission Date: 20260118
  Serious: Yes (Death)
  Sender: GLAND PHARMA LTD
  Company Number: US-GLANDPHARMA-US-2025GLNSPO01894

PATIENT

DRUGS (1)
  1. VECURONIUM BROMIDE FOR INJECTION [Suspect]
     Active Substance: VECURONIUM BROMIDE
     Indication: Product used for unknown indication
     Route: 065
     Dates: start: 2017

REACTIONS (1)
  - Wrong product administered [Fatal]

NARRATIVE: CASE EVENT DATE: 20170101
